FAERS Safety Report 17237686 (Version 1)
Quarter: 2020Q1

REPORT INFORMATION
  Report Type: Spontaneous
  Country: US (occurrence: US)
  Receive Date: 20200106
  Receipt Date: 20200106
  Transmission Date: 20200409
  Serious: No
  Sender: FDA-Public Use
  Company Number: US-PFIZER INC-2020003312

PATIENT

DRUGS (3)
  1. ADVIL [Suspect]
     Active Substance: IBUPROFEN
     Dosage: UNK; (TWO ADVIL)
  2. COLD EEZE [Suspect]
     Active Substance: ZINC GLUCONATE
     Dosage: UNK; (THREE COLD EEZE^S)
  3. ROBITUSSIN (GUAIFENESIN) [Suspect]
     Active Substance: GUAIFENESIN
     Dosage: UNK; (CAPFUL OF ROBITUSSIN)

REACTIONS (1)
  - Drug ineffective [Unknown]
